FAERS Safety Report 21407270 (Version 1)
Quarter: 2022Q4

REPORT INFORMATION
  Report Type: Report from Study
  Country: CA (occurrence: CA)
  Receive Date: 20221004
  Receipt Date: 20221004
  Transmission Date: 20230113
  Serious: Yes (Other)
  Sender: FDA-Public Use
  Company Number: CA-CELLTRION INC.-2022CA015873

PATIENT

DRUGS (1)
  1. TRUXIMA [Suspect]
     Active Substance: RITUXIMAB-ABBS
     Indication: Encephalitis autoimmune
     Dosage: 1000MG GIVEN ON DAY 1 AND 1000MG GIVEN ON DAY 15 THEN 1000MG Q 6 MONTHS FOR 24 MONTHS

REACTIONS (2)
  - Encephalitis autoimmune [Unknown]
  - Off label use [Unknown]
